FAERS Safety Report 4845029-4 (Version None)
Quarter: 2005Q4

REPORT INFORMATION
  Report Type: 
  Country: None (occurrence: None)
  Receive Date: 20051205
  Receipt Date: 20051109
  Transmission Date: 20060501
  Serious: Yes (Life-Threatening, Hospitalization)
  Sender: FDA-Public Use
  Company Number: 2005AP05855

PATIENT
  Age: 9917 Day
  Sex: Male

DRUGS (11)
  1. QUETIAPINE FUMARATE [Suspect]
     Indication: SLEEP DISORDER
     Route: 048
     Dates: start: 20050911, end: 20050912
  2. QUETIAPINE FUMARATE [Suspect]
     Route: 048
     Dates: start: 20050913, end: 20050914
  3. RISPERDAL [Suspect]
     Indication: SCHIZOPHRENIA
     Route: 048
     Dates: start: 20050911, end: 20050912
  4. RISPERDAL [Suspect]
     Route: 048
     Dates: start: 20050913, end: 20050914
  5. RISPERDAL [Suspect]
     Route: 048
     Dates: start: 20050915, end: 20050924
  6. RISPERDAL [Suspect]
     Route: 048
     Dates: start: 20050924, end: 20050925
  7. ETIZOLAM [Concomitant]
     Indication: INSOMNIA
     Route: 048
     Dates: start: 20050913, end: 20050924
  8. FLUNITRAZEPAM [Concomitant]
     Indication: INSOMNIA
     Route: 048
     Dates: end: 20050924
  9. TRIAZOLAM [Concomitant]
     Indication: INSOMNIA
     Route: 048
     Dates: end: 20050924
  10. BIPERIDEN HYDROCHLORIDE TAB [Concomitant]
     Indication: PARKINSONISM
     Route: 048
     Dates: start: 20050911, end: 20050912
  11. BIPERIDEN HYDROCHLORIDE TAB [Concomitant]
     Route: 048
     Dates: start: 20050913, end: 20050924

REACTIONS (9)
  - CONVULSION [None]
  - DEHYDRATION [None]
  - ENCEPHALITIS [None]
  - FALL [None]
  - INADEQUATE DIET [None]
  - NEUROLEPTIC MALIGNANT SYNDROME [None]
  - OPEN WOUND [None]
  - PNEUMONIA [None]
  - TREATMENT NONCOMPLIANCE [None]
